FAERS Safety Report 13017701 (Version 2)
Quarter: 2017Q1

REPORT INFORMATION
  Report Type: Spontaneous
  Country: US (occurrence: US)
  Receive Date: 20161212
  Receipt Date: 20170104
  Transmission Date: 20170428
  Serious: No
  Sender: FDA-Public Use
  Company Number: US-PFIZER INC-2016565736

PATIENT
  Age: 51 Year
  Sex: Female

DRUGS (1)
  1. GABAPENTIN. [Suspect]
     Active Substance: GABAPENTIN
     Indication: NEURALGIA
     Dosage: UNK
     Route: 048
     Dates: start: 20150804

REACTIONS (4)
  - Drug hypersensitivity [Unknown]
  - Mood altered [Unknown]
  - Product use issue [Unknown]
  - Abnormal behaviour [Unknown]
